FAERS Safety Report 4826400-3 (Version None)
Quarter: 2005Q4

REPORT INFORMATION
  Report Type: 
  Country: None (occurrence: None)
  Receive Date: 20051014
  Receipt Date: 20050714
  Transmission Date: 20060501
  Serious: No
  Sender: FDA-Public Use
  Company Number: 2005SP001893

PATIENT
  Sex: Male

DRUGS (6)
  1. LUNESTA [Suspect]
     Dosage: 2 MG;HS
     Dates: start: 20050701
  2. GLUCOPHAGE [Concomitant]
  3. ELAVIL [Concomitant]
  4. LORTAB [Concomitant]
  5. WELLBUTRIN [Concomitant]
  6. XANAX [Concomitant]

REACTIONS (2)
  - DRUG INEFFECTIVE [None]
  - INSOMNIA [None]
